FAERS Safety Report 12630525 (Version 3)
Quarter: 2016Q3

REPORT INFORMATION
  Report Type: Spontaneous
  Country: US (occurrence: US)
  Receive Date: 20160808
  Receipt Date: 20160815
  Transmission Date: 20161109
  Serious: No
  Sender: FDA-Public Use
  Company Number: US-SMITH AND NEPHEW, INC-2016SMT00635

PATIENT
  Age: 78 Year
  Sex: Male

DRUGS (13)
  1. REGRANEX [Suspect]
     Active Substance: BECAPLERMIN
     Indication: ULCER
     Dosage: UNK UNK, 1X/DAY
     Route: 061
     Dates: start: 20160718, end: 20160726
  2. COUMADIN [Concomitant]
     Active Substance: WARFARIN SODIUM
     Dosage: 5 MG, 2X/DAY
  3. IPRATROPIUM [Concomitant]
     Active Substance: IPRATROPIUM
     Dosage: UNK, AS NEEDED
  4. METFORMIN [Concomitant]
     Active Substance: METFORMIN HYDROCHLORIDE
  5. REGRANEX [Suspect]
     Active Substance: BECAPLERMIN
     Dosage: UNK, 1X/DAY
     Route: 061
     Dates: start: 20160729
  6. SIMVASTATIN. [Concomitant]
     Active Substance: SIMVASTATIN
  7. CENTRUM SILVER WITH LUTEIN [Concomitant]
  8. VITAMIN B12 [Concomitant]
     Active Substance: CYANOCOBALAMIN
  9. FUROSEMIDE. [Concomitant]
     Active Substance: FUROSEMIDE
  10. GEMFIBROZIL. [Concomitant]
     Active Substance: GEMFIBROZIL
  11. METOPROLOL. [Concomitant]
     Active Substance: METOPROLOL
  12. DIOVAN [Concomitant]
     Active Substance: VALSARTAN
  13. ALLOPURINOL. [Concomitant]
     Active Substance: ALLOPURINOL

REACTIONS (2)
  - Wound complication [Unknown]
  - Off label use [Unknown]

NARRATIVE: CASE EVENT DATE: 201607
